FAERS Safety Report 7720843-6 (Version None)
Quarter: 2011Q3

REPORT INFORMATION
  Report Type: 
  Country: None (occurrence: None)
  Receive Date: 20110830
  Receipt Date: 20110830
  Transmission Date: 20111222
  Serious: Yes (Life-Threatening, Hospitalization, Other)
  Sender: FDA-Public Use
  Company Number: None

PATIENT
  Age: 19 Year
  Sex: Male
  Weight: 56.6996 kg

DRUGS (1)
  1. ZYPREXA [Suspect]
     Indication: SCHIZOPHRENIA
     Dosage: 175 MGS 2X
     Dates: start: 20010101

REACTIONS (5)
  - LOSS OF EMPLOYMENT [None]
  - AUTOPHOBIA [None]
  - AMNESIA [None]
  - SUICIDAL IDEATION [None]
  - BURNING SENSATION [None]
